FAERS Safety Report 4385679-5 (Version None)
Quarter: 2004Q2

REPORT INFORMATION
  Report Type: 
  Country: None (occurrence: None)
  Receive Date: 20040622
  Receipt Date: 20040614
  Transmission Date: 20050107
  Serious: Yes (Hospitalization)
  Sender: FDA-Public Use
  Company Number: A0514706A

PATIENT
  Age: 63 Year
  Sex: Female
  Weight: 96.7976 kg

DRUGS (7)
  1. GAVISCON [Suspect]
     Indication: GASTROOESOPHAGEAL REFLUX DISEASE
     Dosage: ORAL
     Route: 048
  2. ESOMEPRAZOLE [Concomitant]
  3. VALSARTAN [Concomitant]
  4. VERAPAMIL [Concomitant]
  5. HYDROCHLOROTHIAZIDE [Concomitant]
  6. ACETAMINOPHEN [Concomitant]
  7. STRESSTABS 600 [Concomitant]

REACTIONS (7)
  - ARRHYTHMIA [None]
  - CHEST DISCOMFORT [None]
  - CONDITION AGGRAVATED [None]
  - DYSPNOEA [None]
  - FLUID RETENTION [None]
  - HYPERTENSION [None]
  - LUNG NEOPLASM MALIGNANT [None]
